FAERS Safety Report 22774569 (Version 3)
Quarter: 2025Q1

REPORT INFORMATION
  Report Type: Other
  Country: PL (occurrence: PL)
  Receive Date: 20230802
  Receipt Date: 20250314
  Transmission Date: 20250409
  Serious: Yes (Hospitalization, Disabling, Other)
  Sender: MERCK KGAA
  Company Number: None

PATIENT
  Age: 83 Year
  Sex: Female
  Weight: 91 kg

DRUGS (79)
  1. LEVOTHYROXINE SODIUM [Suspect]
     Active Substance: LEVOTHYROXINE SODIUM
     Indication: Product used for unknown indication
  2. LEVOTHYROXINE SODIUM [Suspect]
     Active Substance: LEVOTHYROXINE SODIUM
  3. METFORMIN [Interacting]
     Active Substance: METFORMIN HYDROCHLORIDE
     Indication: Type 2 diabetes mellitus
  4. LEVOTHYROXINE [Interacting]
     Active Substance: LEVOTHYROXINE
     Indication: Product used for unknown indication
  5. ISOSORBIDE MONONITRATE [Suspect]
     Active Substance: ISOSORBIDE MONONITRATE
     Indication: Product used for unknown indication
     Dosage: 50 MG, AD HOC, USUALLY, 1-2 TABLETS A DAY)
     Route: 065
  6. ISOSORBIDE MONONITRATE [Suspect]
     Active Substance: ISOSORBIDE MONONITRATE
     Indication: Coronary artery disease
     Route: 048
  7. GLICLAZIDE [Suspect]
     Active Substance: GLICLAZIDE
     Indication: Product used for unknown indication
     Dosage: 60 MG, THRICE A DAY
  8. DONEPEZIL [Suspect]
     Active Substance: DONEPEZIL
     Indication: Product used for unknown indication
  9. ATORVASTATIN CALCIUM [Suspect]
     Active Substance: ATORVASTATIN CALCIUM
     Indication: Product used for unknown indication
  10. DABIGATRAN [Suspect]
     Active Substance: DABIGATRAN
     Indication: Product used for unknown indication
  11. DABIGATRAN [Suspect]
     Active Substance: DABIGATRAN
     Dosage: 110 MG, BID/DRUG LIST AFTER MODIFICATION
     Route: 048
  12. DABIGATRAN [Suspect]
     Active Substance: DABIGATRAN
     Dosage: 110 MG, BID/DRUG LIST AFTER MODIFICATION
  13. DENOSUMAB [Suspect]
     Active Substance: DENOSUMAB
     Indication: Product used for unknown indication
  14. DEXTROSE\NIKETHAMIDE [Suspect]
     Active Substance: DEXTROSE\NIKETHAMIDE
     Indication: Product used for unknown indication
  15. HYDROXYZINE [Suspect]
     Active Substance: HYDROXYZINE HYDROCHLORIDE
     Indication: Product used for unknown indication
     Dosage: 2 DF, ONCE A DAY/25 MG, AD HOC, USUALLY
     Route: 065
  16. HYDROXYZINE [Suspect]
     Active Substance: HYDROXYZINE HYDROCHLORIDE
  17. POTASSIUM CHLORIDE [Suspect]
     Active Substance: POTASSIUM CHLORIDE
     Indication: Product used for unknown indication
     Dosage: 1 TABLET (391 K PLUS) EVERY 2 DAYS (1 DOSAGE FORMS 1 IN 2 DAY)
  18. ACETAMINOPHEN [Suspect]
     Active Substance: ACETAMINOPHEN
     Indication: Product used for unknown indication
  19. ACETAMINOPHEN [Suspect]
     Active Substance: ACETAMINOPHEN
     Route: 065
  20. ACETAMINOPHEN [Suspect]
     Active Substance: ACETAMINOPHEN
     Route: 065
  21. ZOLPIDEM [Suspect]
     Active Substance: ZOLPIDEM TARTRATE
     Indication: Depression
  22. ZOLPIDEM [Suspect]
     Active Substance: ZOLPIDEM TARTRATE
  23. TRAMADOL [Suspect]
     Active Substance: TRAMADOL
     Indication: Pain
  24. TRAMADOL HYDROCHLORIDE [Suspect]
     Active Substance: TRAMADOL HYDROCHLORIDE
     Indication: Product used for unknown indication
     Route: 065
  25. TRAMADOL HYDROCHLORIDE [Suspect]
     Active Substance: TRAMADOL HYDROCHLORIDE
     Indication: Pain
  26. TRAMADOL HYDROCHLORIDE [Suspect]
     Active Substance: TRAMADOL HYDROCHLORIDE
  27. OMEPRAZOLE [Suspect]
     Active Substance: OMEPRAZOLE
     Indication: Product used for unknown indication
     Dosage: 100 MG 1-1-0
     Route: 048
  28. OMEPRAZOLE [Suspect]
     Active Substance: OMEPRAZOLE
     Dosage: 20 MG, QD/0-0-1
     Route: 048
  29. BENSERAZIDE\LEVODOPA [Suspect]
     Active Substance: BENSERAZIDE\LEVODOPA
     Indication: Product used for unknown indication
  30. TORSEMIDE [Suspect]
     Active Substance: TORSEMIDE
     Indication: Product used for unknown indication
     Dosage: 1-0-0
     Route: 048
  31. ZOLPIDEM [Suspect]
     Active Substance: ZOLPIDEM TARTRATE
     Indication: Depression
  32. ZOLPIDEM [Suspect]
     Active Substance: ZOLPIDEM TARTRATE
  33. CITALOPRAM [Interacting]
     Active Substance: CITALOPRAM
     Indication: Depression
     Dosage: 1-0-0
     Route: 065
  34. CITALOPRAM [Interacting]
     Active Substance: CITALOPRAM
     Dosage: 0-0-1
  35. OMEPRAZOLE [Interacting]
     Active Substance: OMEPRAZOLE
     Indication: Product used for unknown indication
     Route: 065
  36. ATORVASTATIN [Interacting]
     Active Substance: ATORVASTATIN
     Indication: Product used for unknown indication
     Dosage: 0-0-1
  37. ATORVASTATIN [Interacting]
     Active Substance: ATORVASTATIN
     Dosage: 2 DF, QD/0,5 MG, AD HOC, USUALLY
  38. ALPRAZOLAM [Interacting]
     Active Substance: ALPRAZOLAM
     Indication: Depression
     Route: 048
  39. ALPRAZOLAM [Interacting]
     Active Substance: ALPRAZOLAM
     Route: 065
  40. ALPRAZOLAM [Interacting]
     Active Substance: ALPRAZOLAM
     Route: 048
  41. BETAHISTINE HYDROCHLORIDE [Interacting]
     Active Substance: BETAHISTINE HYDROCHLORIDE
     Indication: Dizziness
  42. BETAHISTINE [Interacting]
     Active Substance: BETAHISTINE
     Indication: Product used for unknown indication
  43. BETAHISTINE [Interacting]
     Active Substance: BETAHISTINE
  44. BETAHISTINE [Interacting]
     Active Substance: BETAHISTINE
  45. BETAHISTINE [Interacting]
     Active Substance: BETAHISTINE
  46. DABIGATRAN [Interacting]
     Active Substance: DABIGATRAN
     Indication: Product used for unknown indication
     Dosage: 110 MG, BID/DRUG LIST AT THE ADMISSION
     Route: 048
  47. FUROSEMIDE [Interacting]
     Active Substance: FUROSEMIDE
     Indication: Product used for unknown indication
     Dosage: 3 TABLETS EVERY 2 DAYS
  48. HYDROCHLOROTHIAZIDE [Interacting]
     Active Substance: HYDROCHLOROTHIAZIDE
     Indication: Product used for unknown indication
     Dosage: 1-0-0
  49. HYDROXYZINE [Interacting]
     Active Substance: HYDROXYZINE HYDROCHLORIDE
     Indication: Product used for unknown indication
     Route: 065
  50. HYDROXYZINE [Interacting]
     Active Substance: HYDROXYZINE HYDROCHLORIDE
     Indication: Product used for unknown indication
     Route: 065
  51. HYDROXYZINE [Interacting]
     Active Substance: HYDROXYZINE HYDROCHLORIDE
     Dosage: 2 IOU
     Route: 065
  52. METOPROLOL [Interacting]
     Active Substance: METOPROLOL
     Indication: Hypertension
     Dosage: 50 MG BID 1-0-1/2
     Route: 065
  53. METOPROLOL [Interacting]
     Active Substance: METOPROLOL
     Indication: Type 2 diabetes mellitus
     Dosage: 1-0-1
     Route: 065
  54. METOPROLOL [Interacting]
     Active Substance: METOPROLOL
     Route: 065
  55. METOCLOPRAMIDE [Interacting]
     Active Substance: METOCLOPRAMIDE
     Indication: Constipation
  56. METOCLOPRAMIDE [Interacting]
     Active Substance: METOCLOPRAMIDE
     Route: 065
  57. NIKETHAMIDE [Interacting]
     Active Substance: NIKETHAMIDE
     Indication: Product used for unknown indication
  58. RAMIPRIL [Interacting]
     Active Substance: RAMIPRIL
     Indication: Cardiac failure
  59. RAMIPRIL [Interacting]
     Active Substance: RAMIPRIL
     Dosage: 1-0-0
  60. ALBUTEROL [Interacting]
     Active Substance: ALBUTEROL
     Indication: Product used for unknown indication
     Route: 065
  61. ALBUTEROL [Interacting]
     Active Substance: ALBUTEROL
     Indication: Product used for unknown indication
  62. TRAMADOL [Interacting]
     Active Substance: TRAMADOL
     Indication: Pain
     Dosage: AS NEEDED 2 TABLETS
  63. CHOLECALCIFEROL [Interacting]
     Active Substance: CHOLECALCIFEROL
     Indication: Product used for unknown indication
  64. POTASSIUM CHLORIDE [Interacting]
     Active Substance: POTASSIUM CHLORIDE
     Indication: Product used for unknown indication
     Dosage: 1 DF EVERY 2 DAYS/391 MG K
  65. ALLOPURINOL [Interacting]
     Active Substance: ALLOPURINOL
     Indication: Product used for unknown indication
  66. ALLOPURINOL [Interacting]
     Active Substance: ALLOPURINOL
     Dosage: 1-0-0
  67. DEXTROSE\NIKETHAMIDE [Interacting]
     Active Substance: DEXTROSE\NIKETHAMIDE
     Indication: Product used for unknown indication
  68. SPIRONOLACTONE [Interacting]
     Active Substance: SPIRONOLACTONE
     Indication: Product used for unknown indication
  69. ACARBOSE [Concomitant]
     Active Substance: ACARBOSE
     Indication: Hyperglycaemia
     Route: 048
  70. AMLODIPINE BESYLATE [Concomitant]
     Active Substance: AMLODIPINE BESYLATE
     Indication: Hypertension
     Route: 048
  71. DEXTROSE [Concomitant]
     Active Substance: DEXTROSE MONOHYDRATE
     Indication: Product used for unknown indication
  72. HYDROXYZINE [Concomitant]
     Active Substance: HYDROXYZINE HYDROCHLORIDE
     Indication: Product used for unknown indication
  73. QUETIAPINE [Concomitant]
     Active Substance: QUETIAPINE
     Indication: Product used for unknown indication
     Dosage: 0-0-1
  74. RUFLOXACIN [Concomitant]
     Active Substance: RUFLOXACIN
     Indication: Nasopharyngitis
     Route: 048
  75. HYDROTALCITE [Concomitant]
     Active Substance: HYDROTALCITE
     Indication: Abdominal pain upper
  76. TRAMADOL HYDROCHLORIDE [Concomitant]
     Active Substance: TRAMADOL HYDROCHLORIDE
     Indication: Product used for unknown indication
  77. VORTIOXETINE [Concomitant]
     Active Substance: VORTIOXETINE
     Indication: Product used for unknown indication
     Dosage: 0-0-1
  78. LAN DI [AMLODIPINE BESILATE] [Concomitant]
     Indication: Hypertension
     Route: 048
  79. INSULIN PORK\INSULIN PURIFIED PORK [Concomitant]
     Active Substance: INSULIN PORK\INSULIN PURIFIED PORK
     Indication: Blood glucose abnormal

REACTIONS (61)
  - Parkinsonism [Unknown]
  - Dementia [Unknown]
  - Sedation [Recovering/Resolving]
  - Nausea [Unknown]
  - Motor dysfunction [Recovering/Resolving]
  - Constipation [Unknown]
  - Urinary retention [Unknown]
  - Mobility decreased [Recovering/Resolving]
  - Arthralgia [Unknown]
  - Gastric polyps [Unknown]
  - Dizziness [Recovering/Resolving]
  - Atrioventricular block first degree [Recovering/Resolving]
  - Syncope [Recovering/Resolving]
  - Bradykinesia [Unknown]
  - Hypotension [Recovering/Resolving]
  - Muscle rigidity [Unknown]
  - Fall [Recovering/Resolving]
  - Hypotension [Unknown]
  - Hypoglycaemia [Recovered/Resolved]
  - Atrioventricular block first degree [Recovering/Resolving]
  - Hyperkalaemia [Unknown]
  - Cognitive disorder [Unknown]
  - Melaena [Unknown]
  - Hiatus hernia [Unknown]
  - Osteoporosis [Unknown]
  - Hyperglycaemia [Unknown]
  - Peripheral circulatory failure [Unknown]
  - Hyponatraemia [Unknown]
  - Abdominal pain upper [Unknown]
  - Pruritus [Unknown]
  - Hypoglycaemia [Unknown]
  - Hyponatraemia [Unknown]
  - Orthostatic hypotension [Unknown]
  - Hypotonia [Recovering/Resolving]
  - Blood urea increased [Unknown]
  - Dementia [Unknown]
  - Blood potassium increased [Unknown]
  - Dysuria [Unknown]
  - Neuroglycopenia [Unknown]
  - Blood creatine increased [Unknown]
  - Blood pressure decreased [Unknown]
  - Diabetes mellitus inadequate control [Unknown]
  - Pruritus [Unknown]
  - Blood cholesterol decreased [Unknown]
  - Hypotonia [Unknown]
  - Melaena [Unknown]
  - Gastrointestinal disorder [Unknown]
  - Abdominal pain upper [Unknown]
  - Dysuria [Unknown]
  - Stupor [Unknown]
  - Hypertension [Unknown]
  - Arthralgia [Unknown]
  - Depression [Unknown]
  - Drug dependence [Unknown]
  - Depression [Unknown]
  - Insomnia [Unknown]
  - Atrial fibrillation [Unknown]
  - Initial insomnia [Unknown]
  - Insomnia [Unknown]
  - Multiple drug therapy [Unknown]
  - Off label use [Unknown]

NARRATIVE: CASE EVENT DATE: 20210101
